FAERS Safety Report 8768754 (Version 1)
Quarter: 2012Q4

REPORT INFORMATION
  Report Type: 
  Country: US (occurrence: US)
  Receive Date: 20120906
  Receipt Date: 20120906
  Transmission Date: 20130627
  Serious: Yes (Hospitalization)
  Sender: FDA-Public Use
  Company Number: US-TEVA-356898USA

PATIENT
  Age: 36 None
  Sex: Female
  Weight: 47.67 kg

DRUGS (1)
  1. PROVIGIL [Suspect]
     Indication: FATIGUE
     Dosage: 200 Milligram Daily;
     Route: 048
     Dates: start: 1995

REACTIONS (4)
  - Cardiac failure congestive [Recovered/Resolved]
  - Myocardial infarction [Recovered/Resolved]
  - Drug effect decreased [Not Recovered/Not Resolved]
  - Off label use [Unknown]
